FAERS Safety Report 6330416-8 (Version None)
Quarter: 2009Q3

REPORT INFORMATION
  Report Type: 
  Country: None (occurrence: None)
  Receive Date: 20090827
  Receipt Date: 20070521
  Transmission Date: 20100115
  Serious: Yes (Other)
  Sender: FDA-Public Use
  Company Number: US-ASTRAZENECA-2006UW24462

PATIENT
  Age: 52 Year
  Sex: Female
  Weight: 89.8 kg

DRUGS (26)
  1. SEROQUEL [Suspect]
     Indication: SCHIZOPHRENIA
     Dosage: 25 MG-800 MG DAILY
     Route: 048
     Dates: start: 20010911
  2. SEROQUEL [Suspect]
     Indication: BIPOLAR DISORDER
     Dosage: 25 MG-800 MG DAILY
     Route: 048
     Dates: start: 20010911
  3. SEROQUEL [Suspect]
     Indication: DEPRESSION
     Dosage: 25 MG-800 MG DAILY
     Route: 048
     Dates: start: 20010911
  4. SEROQUEL [Suspect]
     Indication: AGITATION
     Dosage: 25 MG-800 MG DAILY
     Route: 048
     Dates: start: 20010911
  5. SEROQUEL [Suspect]
     Route: 048
  6. SEROQUEL [Suspect]
     Route: 048
  7. SEROQUEL [Suspect]
     Route: 048
  8. SEROQUEL [Suspect]
     Route: 048
  9. ABILIFY [Concomitant]
     Dosage: 15 MG-30 MG DAILY
     Route: 048
     Dates: start: 20030506
  10. ABILIFY [Concomitant]
  11. LIPITOR [Concomitant]
     Dates: start: 20061211
  12. ENALAPRIL MALEATE [Concomitant]
     Route: 048
     Dates: start: 20030826
  13. DILTIAZEM [Concomitant]
     Dates: start: 20061211
  14. AVANDIA [Concomitant]
     Route: 048
     Dates: start: 20061211
  15. EFFEXOR XR [Concomitant]
     Dosage: 75 MG-150 MG DAILY
     Route: 048
     Dates: start: 20060425
  16. DESYREL [Concomitant]
     Dosage: 50 MG-100 MG AT NIGHT
     Dates: start: 20060425
  17. ZOLOFT [Concomitant]
     Dosage: 150 MG-200 MG DAILY
     Route: 048
     Dates: start: 20010911
  18. AMBIEN [Concomitant]
     Indication: SLEEP DISORDER
     Route: 048
     Dates: start: 20061211
  19. KLONOPIN [Concomitant]
     Indication: ANXIETY
     Route: 048
     Dates: start: 20010718
  20. BUSPAR [Concomitant]
     Route: 048
     Dates: start: 20010718
  21. ATIVAN [Concomitant]
     Dates: start: 20010911
  22. REMERON [Concomitant]
     Dates: start: 20010718
  23. PAXIL [Concomitant]
     Dates: start: 20010718
  24. ZYPREXA [Concomitant]
     Dates: start: 20010718
  25. RISPERDAL [Concomitant]
     Dates: start: 20011001
  26. ZOCOR [Concomitant]
     Route: 048
     Dates: start: 20070414

REACTIONS (4)
  - DIABETES MELLITUS [None]
  - DRUG INTOLERANCE [None]
  - HIP ARTHROPLASTY [None]
  - TYPE 2 DIABETES MELLITUS [None]
